FAERS Safety Report 6153803-X (Version None)
Quarter: 2009Q2

REPORT INFORMATION
  Report Type: 
  Country: None (occurrence: None)
  Receive Date: 20090414
  Receipt Date: 20071130
  Transmission Date: 20091009
  Serious: Yes (Death)
  Sender: FDA-Public Use
  Company Number: US-ASTRAZENECA-2006UW24936

PATIENT
  Sex: Female
  Weight: 66 kg

DRUGS (6)
  1. SEROQUEL [Suspect]
     Route: 048
     Dates: start: 20050112
  2. NEURONTIN [Concomitant]
  3. AUGMENTIN '125' [Concomitant]
  4. HYDROCHLOROTHIAZIDE [Concomitant]
  5. PHENERGAN [Concomitant]
  6. LANSOPRAZOLE [Concomitant]

REACTIONS (3)
  - ARTERIOSCLEROSIS [None]
  - DIABETES MELLITUS [None]
  - HYPERTENSIVE HEART DISEASE [None]
